FAERS Safety Report 7669202-5 (Version None)
Quarter: 2011Q3

REPORT INFORMATION
  Report Type: 
  Country: None (occurrence: None)
  Receive Date: 20110808
  Receipt Date: 20110729
  Transmission Date: 20111222
  Serious: Yes (Hospitalization, Other)
  Sender: FDA-Public Use
  Company Number: PHFR2011GB01828

PATIENT
  Sex: Male

DRUGS (1)
  1. CLOZAPINE [Suspect]
     Indication: SCHIZOPHRENIA
     Route: 048
     Dates: start: 20080905, end: 20110307

REACTIONS (10)
  - LOSS OF CONSCIOUSNESS [None]
  - PNEUMONIA [None]
  - ARTHRALGIA [None]
  - DELIRIUM [None]
  - BRADYCARDIA [None]
  - CONVULSION [None]
  - SOMNOLENCE [None]
  - CONFUSIONAL STATE [None]
  - BACK PAIN [None]
  - LOWER RESPIRATORY TRACT INFECTION [None]
